FAERS Safety Report 12155441 (Version 1)
Quarter: 2016Q1

REPORT INFORMATION
  Report Type: Spontaneous
  Country: US (occurrence: US)
  Receive Date: 20160307
  Receipt Date: 20160307
  Transmission Date: 20160526
  Serious: Yes (Hospitalization)
  Sender: FDA-Public Use
  Company Number: US-SMITH AND NEPHEW, INC-2016SMT00175

PATIENT
  Age: 63 Year
  Sex: Male

DRUGS (9)
  1. XARELTO [Concomitant]
     Active Substance: RIVAROXABAN
     Dosage: 20 MG, 1X/DAY
  2. BABY ASPIRIN [Concomitant]
     Active Substance: ASPIRIN
     Dosage: UNK, 1X/DAY
  3. LYRICA [Concomitant]
     Active Substance: PREGABALIN
     Dosage: 150 MG, 2X/DAY
  4. AMBIEN [Concomitant]
     Active Substance: ZOLPIDEM TARTRATE
     Dosage: UNK, AS NEEDED
  5. PAXIL [Concomitant]
     Active Substance: PAROXETINE HYDROCHLORIDE
     Dosage: 20 MG, 1X/DAY
  6. LOSARTAN POTASSIUM. [Concomitant]
     Active Substance: LOSARTAN POTASSIUM
     Dosage: 100 MG, 1X/DAY
  7. REGRANEX [Suspect]
     Active Substance: BECAPLERMIN
     Indication: WOUND
     Dosage: UNK
     Route: 061
     Dates: start: 201602, end: 20160220
  8. ATENOLOL. [Concomitant]
     Active Substance: ATENOLOL
     Dosage: 50 MG, 1X/DAY
  9. FOLIC ACID. [Concomitant]
     Active Substance: FOLIC ACID
     Dosage: 1 MG, 1X/DAY

REACTIONS (3)
  - Incision site haemorrhage [Recovered/Resolved]
  - Vascular bypass dysfunction [Recovered/Resolved]
  - Off label use [Unknown]

NARRATIVE: CASE EVENT DATE: 201602
